FAERS Safety Report 7520095-6 (Version None)
Quarter: 2011Q2

REPORT INFORMATION
  Report Type: 
  Country: None (occurrence: None)
  Receive Date: 20110602
  Receipt Date: 20110527
  Transmission Date: 20111010
  Serious: Yes (Death, Life-Threatening, Hospitalization, Other)
  Sender: FDA-Public Use
  Company Number: DE-GENZYME-FLUD-1000304

PATIENT
  Age: 16 Year
  Sex: Male

DRUGS (9)
  1. FLUDARA [Suspect]
     Indication: ACUTE LYMPHOCYTIC LEUKAEMIA
     Dosage: 30 MG/M2 QD FOR 30 MIN INFUSION
     Route: 042
  2. FLUCONAZOLE [Concomitant]
     Indication: ANTIBIOTIC PROPHYLAXIS
     Dosage: 3 MG/KG, QD
     Route: 065
  3. IDARUBICIN HCL [Suspect]
     Indication: ACUTE LYMPHOCYTIC LEUKAEMIA
     Dosage: 12 MG/M2, QD OVER 1 HOUR, 1 HOUR PRIOR TO ARA-C
     Route: 042
  4. TRIMETHOPRIM + SULFAMETHOXAZOLE [Concomitant]
     Indication: ANTIBIOTIC PROPHYLAXIS
     Dosage: 5 MG/KG, TIW
     Route: 065
  5. CYTARABINE [Suspect]
     Indication: ACUTE LYMPHOCYTIC LEUKAEMIA
     Dosage: 2000 MG/M2 QD FOR 3 HR INFUSION 4 HRS AFTER STARTING FLUDARABINE
     Route: 042
  6. ANTIEMETICS AND ANTINAUSEANTS [Concomitant]
     Indication: PRODUCT USED FOR UNKNOWN INDICATION
  7. GRANULOCYTE COLONY STIMULATING FACTOR [Suspect]
     Indication: ACUTE LYMPHOCYTIC LEUKAEMIA
     Dosage: 400 MCG/M2, QD
     Route: 065
  8. CORTICOSTEROIDS [Concomitant]
     Indication: PRODUCT USED FOR UNKNOWN INDICATION
     Dosage: QID STARTING BEFORE FIRST ARA-C INFUSION UNTIL 12 HRS AFTER LAST INFUSION
     Route: 047
  9. CHEMOTHERAPEUTICS NOS [Concomitant]
     Indication: ACUTE LYMPHOCYTIC LEUKAEMIA

REACTIONS (4)
  - CARDIOTOXICITY [None]
  - MUCOSAL INFLAMMATION [None]
  - FUNGAL INFECTION [None]
  - FEBRILE NEUTROPENIA [None]
